FAERS Safety Report 9671521 (Version 1)
Quarter: 2013Q4

REPORT INFORMATION
  Report Type: Spontaneous
  Country: IT (occurrence: None)
  Receive Date: 20131104
  Receipt Date: 20131104
  Transmission Date: 20140711
  Serious: Yes (Hospitalization)
  Sender: FDA-Public Use
  Company Number: AUR-APL-2013-09175

PATIENT
  Sex: Female

DRUGS (1)
  1. IRBESARTAN (IRBESARTAN) [Suspect]
     Indication: PRODUCT USED FOR UNKNOWN INDICATION

REACTIONS (3)
  - Hyperchloraemia [None]
  - Hyperkalaemia [None]
  - Metabolic acidosis [None]
